FAERS Safety Report 4606232-1 (Version None)
Quarter: 2005Q1

REPORT INFORMATION
  Report Type: 
  Country: None (occurrence: None)
  Receive Date: 20050116
  Receipt Date: 19960517
  Transmission Date: 20050727
  Serious: Yes (Death)
  Sender: FDA-Public Use
  Company Number: 8-96143-017B

PATIENT
  Sex: Male

DRUGS (4)
  1. EFFEXOR [Suspect]
     Indication: ANXIETY
     Dosage: ORAL; 75 MG 3X PER 1 DAY, ORAL
     Route: 048
     Dates: start: 19941101, end: 19950403
  2. EFFEXOR [Suspect]
     Indication: DEPRESSION
     Dosage: ORAL; 75 MG 3X PER 1 DAY, ORAL
     Route: 048
     Dates: start: 19941101, end: 19950403
  3. EFFEXOR [Suspect]
     Indication: ANXIETY
     Dosage: ORAL; 75 MG 3X PER 1 DAY, ORAL
     Route: 048
     Dates: start: 19950404
  4. EFFEXOR [Suspect]
     Indication: DEPRESSION
     Dosage: ORAL; 75 MG 3X PER 1 DAY, ORAL
     Route: 048
     Dates: start: 19950404

REACTIONS (4)
  - AFFECT LABILITY [None]
  - HOSTILITY [None]
  - OVERDOSE [None]
  - SUICIDE ATTEMPT [None]
